FAERS Safety Report 14163269 (Version 4)
Quarter: 2018Q1

REPORT INFORMATION
  Report Type: Spontaneous
  Country: JP (occurrence: JP)
  Receive Date: 20171107
  Receipt Date: 20180126
  Transmission Date: 20180508
  Serious: Yes (Hospitalization, Other)
  Sender: FDA-Public Use
  Company Number: JP-009507513-1708JPN002887J

PATIENT
  Age: 81 Year
  Sex: Male
  Weight: 51 kg

DRUGS (8)
  1. CELECOX [Suspect]
     Active Substance: CELECOXIB
     Indication: PAIN
     Dosage: 100 MG, BID
     Route: 048
     Dates: start: 20170728, end: 20171017
  2. OXYCONTIN [Suspect]
     Active Substance: OXYCODONE HYDROCHLORIDE
     Indication: CANCER PAIN
     Dosage: 10 MG, BID
     Route: 048
     Dates: start: 20170713, end: 20170716
  3. OXYCONTIN [Suspect]
     Active Substance: OXYCODONE HYDROCHLORIDE
     Dosage: 15 MG, BID
     Route: 048
     Dates: start: 20170717, end: 20170724
  4. PRIMPERAN [Suspect]
     Active Substance: METOCLOPRAMIDE HYDROCHLORIDE
     Indication: NAUSEA
     Dosage: 5 MG, TID
     Route: 048
     Dates: start: 20170725, end: 20170731
  5. KEYTRUDA [Suspect]
     Active Substance: PEMBROLIZUMAB
     Indication: LUNG ADENOCARCINOMA RECURRENT
     Dosage: 200 MG, Q3W
     Route: 041
     Dates: start: 20170711, end: 20170926
  6. NOVAMIN (PROCHLORPERAZINE MALEATE) [Suspect]
     Active Substance: PROCHLORPERAZINE MALEATE
     Indication: PROPHYLAXIS
     Dosage: 5 MG, TID
     Route: 048
     Dates: start: 20170713, end: 20170724
  7. TRAVELMIN [Suspect]
     Active Substance: DIMENHYDRINATE
     Indication: NAUSEA
     Dosage: UNK UNK, TID
     Route: 048
     Dates: start: 20170726, end: 20170808
  8. OLANZAPINE. [Suspect]
     Active Substance: OLANZAPINE
     Indication: NAUSEA
     Dosage: 2.5 MG, QD
     Route: 048
     Dates: start: 20170728, end: 20170808

REACTIONS (5)
  - Haematuria [Recovered/Resolved]
  - Nausea [Unknown]
  - Renal disorder [Recovered/Resolved]
  - Hepatic function abnormal [Recovered/Resolved]
  - Rash generalised [Recovered/Resolved]

NARRATIVE: CASE EVENT DATE: 20170720
